FAERS Safety Report 19350391 (Version 1)
Quarter: 2021Q2

REPORT INFORMATION
  Report Type: Spontaneous
  Country: US (occurrence: US)
  Receive Date: 20210531
  Receipt Date: 20210531
  Transmission Date: 20210717
  Serious: Yes (Other)
  Sender: FDA-Public Use
  Company Number: US-SA-2021SA173630

PATIENT
  Sex: Female

DRUGS (1)
  1. ICY HOT DRY [Suspect]
     Active Substance: MENTHOL

REACTIONS (1)
  - Choking [Unknown]
